FAERS Safety Report 6939925-1 (Version None)
Quarter: 2010Q3

REPORT INFORMATION
  Report Type: 
  Country: None (occurrence: None)
  Receive Date: 20100825
  Receipt Date: 20100813
  Transmission Date: 20110219
  Serious: Yes (Hospitalization, Other)
  Sender: FDA-Public Use
  Company Number: US-PFIZER INC-2010078460

PATIENT
  Sex: Female

DRUGS (20)
  1. SOLU-MEDROL [Suspect]
     Indication: MULTIPLE SCLEROSIS RELAPSE
     Route: 042
  2. BETASERON [Suspect]
     Indication: MULTIPLE SCLEROSIS
     Dosage: UNK
     Route: 058
     Dates: start: 20000214, end: 20040101
  3. BETASERON [Suspect]
     Dosage: 4 MILLIONIU, UNK
     Route: 058
     Dates: start: 20100330
  4. HYZAAR [Concomitant]
     Dosage: 1 DF, UNK
  5. INDERAL [Concomitant]
     Dosage: 80 MG, UNK
  6. GABAPENTIN [Concomitant]
     Dosage: 3200 MG, UNK
  7. AMARYL [Concomitant]
     Dosage: 4 MG, UNK
     Route: 048
  8. CELEXA [Concomitant]
     Dosage: 40 MG, UNK
  9. VITAMIN D3 [Concomitant]
     Dosage: UNK
     Route: 048
  10. PRAVACHOL [Concomitant]
     Dosage: 160 MG, UNK
  11. INSULIN BOVINE [Concomitant]
     Dosage: UNK
  12. SYNTHROID [Concomitant]
     Dosage: 50 UG, UNK
  13. ZANAFLEX [Concomitant]
     Dosage: 24 MG, UNK
  14. METHOTREXATE [Concomitant]
  15. LORTAB [Concomitant]
     Dosage: 1 DF, AS NEEDED
  16. XANAX [Concomitant]
     Dosage: 6 MG, UNK
  17. PROMETHAZINE [Concomitant]
     Dosage: 25 MG, AS NEEDED
  18. ZANTAC [Concomitant]
     Dosage: 600 MG, UNK
     Route: 048
  19. VITAMINS, OTHER COMBINATIONS [Concomitant]
     Dosage: UNK
  20. VITAMINS, OTHER COMBINATIONS [Concomitant]
     Dosage: UNK

REACTIONS (16)
  - CONJUNCTIVITIS [None]
  - CONVULSION [None]
  - DECUBITUS ULCER [None]
  - DEHYDRATION [None]
  - DIASTOLIC DYSFUNCTION [None]
  - FALL [None]
  - HALLUCINATIONS, MIXED [None]
  - HERPES ZOSTER [None]
  - HYPERTENSIVE EMERGENCY [None]
  - HYPOPHAGIA [None]
  - JOINT INJURY [None]
  - MULTIPLE SCLEROSIS RELAPSE [None]
  - PYREXIA [None]
  - RENAL FAILURE ACUTE [None]
  - REVERSIBLE POSTERIOR LEUKOENCEPHALOPATHY SYNDROME [None]
  - URINARY TRACT INFECTION [None]
